FAERS Safety Report 17240161 (Version 1)
Quarter: 2020Q1

REPORT INFORMATION
  Report Type: Spontaneous
  Country: CN (occurrence: CN)
  Receive Date: 20200107
  Receipt Date: 20200107
  Transmission Date: 20200409
  Serious: Yes (Other)
  Sender: FDA-Public Use
  Company Number: CN-ASTELLAS-2020US000280

PATIENT
  Age: 76 Year
  Sex: Male

DRUGS (2)
  1. BETMIGA [Suspect]
     Active Substance: MIRABEGRON
     Indication: POLLAKIURIA
     Route: 048
     Dates: end: 201912
  2. VESICARE [Suspect]
     Active Substance: SOLIFENACIN SUCCINATE
     Indication: POLLAKIURIA
     Dosage: UNK UNK, UNKNOWN FREQ.
     Route: 048

REACTIONS (2)
  - Delirium [Recovered/Resolved]
  - Drug ineffective [Unknown]

NARRATIVE: CASE EVENT DATE: 201912
